FAERS Safety Report 9392398 (Version 1)
Quarter: 2013Q3

REPORT INFORMATION
  Report Type: Spontaneous
  Country: US (occurrence: US)
  Receive Date: 20130710
  Receipt Date: 20130710
  Transmission Date: 20140515
  Serious: No
  Sender: FDA-Public Use
  Company Number: US-BAYER-2013-083652

PATIENT
  Sex: Female

DRUGS (5)
  1. BETASERON [Suspect]
     Dosage: 0.25 MG, QOD
     Route: 058
  2. MAXALT [Concomitant]
     Dosage: 5 MG, UNK
  3. CALCIUM [Concomitant]
     Dosage: 500 MG, UNK
  4. VITAMIN D3 [Concomitant]
     Dosage: 10000 U, UNK
  5. EXCEDRIN MIGRAINE [Concomitant]
     Indication: MIGRAINE

REACTIONS (1)
  - White blood cell count decreased [Unknown]
